FAERS Safety Report 23898626 (Version 2)
Quarter: 2024Q2

REPORT INFORMATION
  Report Type: Spontaneous
  Country: CO (occurrence: CO)
  Receive Date: 20240525
  Receipt Date: 20240614
  Transmission Date: 20240716
  Serious: Yes (Other)
  Sender: FDA-Public Use
  Company Number: CO-CELLTRION INC.-2024CO011780

PATIENT

DRUGS (1)
  1. INFLIXIMAB [Suspect]
     Active Substance: INFLIXIMAB
     Indication: Ankylosing spondylitis
     Dosage: 400 MILLIGRAM, EVERY 4 WEEKS
     Route: 042
     Dates: start: 20230315

REACTIONS (4)
  - Uterine leiomyoma [Recovering/Resolving]
  - Intentional dose omission [Recovering/Resolving]
  - Intentional product use issue [Unknown]
  - Overdose [Unknown]

NARRATIVE: CASE EVENT DATE: 20240501
